FAERS Safety Report 24037094 (Version 1)
Quarter: 2024Q3

REPORT INFORMATION
  Report Type: Spontaneous
  Country: IT (occurrence: IT)
  Receive Date: 20240701
  Receipt Date: 20240701
  Transmission Date: 20241017
  Serious: Yes (Other)
  Sender: TEVA
  Company Number: None

PATIENT
  Age: 67 Year
  Sex: Male

DRUGS (5)
  1. FLUOROURACIL [Suspect]
     Active Substance: FLUOROURACIL
     Indication: Colon cancer metastatic
     Dosage: START OF THERAPY 05/24/2024 - THERAPY EVERY 21 DAYS - 1ST CYCLE?DRUG ADMINISTERED IN CONTINUOUS I...
     Route: 042
     Dates: start: 20240524, end: 20240526
  2. FLUOROURACIL [Suspect]
     Active Substance: FLUOROURACIL
     Indication: Colon cancer metastatic
     Dosage: START OF THERAPY 05/24/2024 - THERAPY EVERY 21 DAYS - 1ST CYCLE - BOLUS INFUSION
     Route: 042
     Dates: start: 20240524, end: 20240524
  3. ZALTRAP [Suspect]
     Active Substance: ZIV-AFLIBERCEPT
     Indication: Colon cancer metastatic
     Dosage: START OF THERAPY 05/24/2024 - THERAPY EVERY 21 DAYS - 1ST CYCLE
     Route: 042
     Dates: start: 20240524, end: 20240524
  4. IRINOTECAN [Suspect]
     Active Substance: IRINOTECAN
     Indication: Colon cancer metastatic
     Dosage: START OF THERAPY 05/24/2024 - THERAPY EVERY 21 DAYS - 1ST CYCLE
     Route: 042
     Dates: start: 20240524, end: 20240524
  5. LEVOLEUCOVORIN [Concomitant]
     Active Substance: LEVOLEUCOVORIN
     Indication: Product used for unknown indication
     Route: 065

REACTIONS (3)
  - Febrile neutropenia [Recovering/Resolving]
  - Diarrhoea [Recovering/Resolving]
  - Thrombocytopenia [Recovering/Resolving]

NARRATIVE: CASE EVENT DATE: 20240601
